FAERS Safety Report 21365696 (Version 3)
Quarter: 2022Q4

REPORT INFORMATION
  Report Type: Spontaneous
  Country: JP (occurrence: JP)
  Receive Date: 20220922
  Receipt Date: 20221028
  Transmission Date: 20230112
  Serious: Yes (Disabling, Other)
  Sender: FDA-Public Use
  Company Number: JP-ELI_LILLY_AND_COMPANY-JP202209010111

PATIENT
  Age: 83 Year
  Sex: Female

DRUGS (1)
  1. DULOXETINE HYDROCHLORIDE [Suspect]
     Active Substance: DULOXETINE HYDROCHLORIDE
     Indication: Back pain
     Dosage: 20 MG, DAILY
     Route: 048
     Dates: end: 20200324

REACTIONS (11)
  - Product dose omission issue [Unknown]
  - Mobility decreased [Not Recovered/Not Resolved]
  - Epilepsy [Unknown]
  - Cognitive disorder [Unknown]
  - Fracture [Unknown]
  - Fall [Unknown]
  - Suicidal ideation [Unknown]
  - Dizziness [Unknown]
  - Headache [Unknown]
  - Somnolence [Unknown]
  - Apathy [Unknown]

NARRATIVE: CASE EVENT DATE: 20200325
